FAERS Safety Report 5995196-4 (Version None)
Quarter: 2008Q4

REPORT INFORMATION
  Report Type: 
  Country: None (occurrence: None)
  Receive Date: 20081212
  Receipt Date: 20080610
  Transmission Date: 20090506
  Serious: No
  Sender: FDA-Public Use
  Company Number: US-AMGEN-KDL283895

PATIENT
  Sex: Female
  Weight: 73.5 kg

DRUGS (12)
  1. ENBREL [Suspect]
     Indication: RHEUMATOID ARTHRITIS
     Route: 058
     Dates: start: 20071201
  2. PRILOSEC [Concomitant]
     Dates: start: 20071210
  3. FLAX SEED OIL [Concomitant]
     Dates: start: 20071210
  4. ULTRAM [Concomitant]
     Dates: start: 20071210
  5. IBUPROFEN [Concomitant]
     Dates: start: 20071210
  6. ACTONEL [Concomitant]
     Dates: start: 20071210
  7. SALAGEN [Concomitant]
     Dates: start: 20070907
  8. THYROID TAB [Concomitant]
     Dates: start: 20070718
  9. VASOTEC [Concomitant]
     Dates: start: 20070604
  10. PLENDIL [Concomitant]
     Dates: start: 20061207
  11. PAXIL [Concomitant]
     Dates: start: 20061012
  12. MULTI-VITAMINS [Concomitant]
     Dates: start: 20070410

REACTIONS (3)
  - INJECTION SITE REACTION [None]
  - RHEUMATOID ARTHRITIS [None]
  - SCRATCH [None]
